FAERS Safety Report 16135925 (Version 1)
Quarter: 2019Q1

REPORT INFORMATION
  Report Type: Spontaneous
  Country: DE (occurrence: DE)
  Receive Date: 20190329
  Receipt Date: 20190329
  Transmission Date: 20190418
  Serious: Yes (Other)
  Sender: FDA-Public Use
  Company Number: PHHY2019DE070292

PATIENT
  Age: 18 Year
  Sex: Female

DRUGS (1)
  1. RITALIN LA [Suspect]
     Active Substance: METHYLPHENIDATE HYDROCHLORIDE
     Indication: PRODUCT USED FOR UNKNOWN INDICATION
     Dosage: 1 DF (20 MG OR 25 MG (WAS NOT CLEAR)), QD
     Route: 065

REACTIONS (3)
  - Hyperkalaemia [Unknown]
  - Supraventricular extrasystoles [Unknown]
  - Product use issue [Unknown]
